FAERS Safety Report 7099101-1 (Version None)
Quarter: 2010Q4

REPORT INFORMATION
  Report Type: 
  Country: None (occurrence: None)
  Receive Date: 20101112
  Receipt Date: 20101105
  Transmission Date: 20110411
  Serious: Yes (Hospitalization)
  Sender: FDA-Public Use
  Company Number: A0891019A

PATIENT
  Sex: Male
  Weight: 63 kg

DRUGS (3)
  1. LAPATINIB [Suspect]
     Dosage: 1500MG PER DAY
     Route: 048
     Dates: start: 20100917
  2. CISPLATIN [Suspect]
     Dosage: 100MGM2 CYCLIC
     Route: 042
     Dates: start: 20100921
  3. RADIOTHERAPY [Suspect]
     Dosage: 8GY VARIABLE DOSE
     Route: 061
     Dates: start: 20100921, end: 20100924

REACTIONS (3)
  - DYSPHAGIA [None]
  - FATIGUE [None]
  - NEUTROPENIA [None]
